FAERS Safety Report 7197395-5 (Version None)
Quarter: 2010Q4

REPORT INFORMATION
  Report Type: 
  Country: None (occurrence: None)
  Receive Date: 20101213
  Receipt Date: 20101126
  Transmission Date: 20110411
  Serious: Yes (Disabling, Other)
  Sender: FDA-Public Use
  Company Number: AUR-APL-2010-02019

PATIENT
  Age: 71 Year
  Sex: Male

DRUGS (4)
  1. SIMVASTATIN [Suspect]
     Indication: BLOOD CHOLESTEROL INCREASED
     Dosage: 20MG - ORAL
     Route: 048
     Dates: start: 20091126, end: 20091201
  2. LIPITOR [Suspect]
     Indication: BLOOD CHOLESTEROL INCREASED
     Dosage: 10MG - ORAL
     Route: 048
     Dates: start: 20031130, end: 20100201
  3. DICLOFENAC [Concomitant]
  4. QUININE SULFATE [Concomitant]

REACTIONS (27)
  - ABDOMINAL PAIN UPPER [None]
  - ARTHRALGIA [None]
  - BLOOD URINE PRESENT [None]
  - CONTUSION [None]
  - DECREASED APPETITE [None]
  - DIARRHOEA [None]
  - DISCOMFORT [None]
  - DIZZINESS [None]
  - DRUG HYPERSENSITIVITY [None]
  - ECONOMIC PROBLEM [None]
  - EPISTAXIS [None]
  - ERECTILE DYSFUNCTION [None]
  - GAIT DISTURBANCE [None]
  - IMPAIRED HEALING [None]
  - LETHARGY [None]
  - MALAISE [None]
  - MUSCLE ATROPHY [None]
  - MUSCLE SPASMS [None]
  - MYALGIA [None]
  - OEDEMA PERIPHERAL [None]
  - SURGICAL FAILURE [None]
  - TENDON DISORDER [None]
  - TENDON GRAFT [None]
  - TENDON PAIN [None]
  - TENDON RUPTURE [None]
  - TENOSYNOVITIS [None]
  - WALKING AID USER [None]
